FAERS Safety Report 20195761 (Version 1)
Quarter: 2021Q4

REPORT INFORMATION
  Report Type: Spontaneous
  Country: ES (occurrence: ES)
  Receive Date: 20211216
  Receipt Date: 20211216
  Transmission Date: 20220304
  Serious: Yes (Life-Threatening, Other)
  Sender: FDA-Public Use
  Company Number: ES-AstraZeneca-2021A081267

PATIENT
  Sex: Female

DRUGS (11)
  1. QUETIAPINE [Suspect]
     Active Substance: QUETIAPINE
     Indication: Product used for unknown indication
     Dosage: UNK 100 MG MORNING-100 MG AFTERNOON-200 MG  NIGHT (FILM-COATED TABLET)
     Route: 048
  2. QUETIAPINE [Suspect]
     Active Substance: QUETIAPINE
     Dosage: UNK (100 MG MORNING-200 MG AFTERNOON-300 MG NIGHT (FILM-COATED TABLET)
     Route: 048
  3. QUETIAPINE [Suspect]
     Active Substance: QUETIAPINE
     Dosage: 100 MILLIGRAM, Q8H (100 MILLIGRAM, Q8H, (3 TIMES A DAY, FILM-COATED TABLET)
     Route: 048
  4. QUETIAPINE [Suspect]
     Active Substance: QUETIAPINE
     Dosage: 25 MILLIGRAM, Q8H (25 MILLIGRAM, Q8H, (FILM-COATED TABLET )
     Route: 048
  5. CLORAZEPATE DIPOTASSIUM [Concomitant]
     Active Substance: CLORAZEPATE DIPOTASSIUM
     Dosage: 50 MILLIGRAM, Q8H, (3 TIMES A DAY)
  6. CLORAZEPATE DIPOTASSIUM [Concomitant]
     Active Substance: CLORAZEPATE DIPOTASSIUM
     Dosage: 50 MILLIGRAM, QD, (AT NIGHT)
  7. RISPERIDONE [Concomitant]
     Active Substance: RISPERIDONE
     Dosage: 3 MILLIGRAM, QD
  8. FLUOXETINE [Concomitant]
     Active Substance: FLUOXETINE HYDROCHLORIDE
     Dosage: 25 MILLIGRAM, QD, (AT AFTERNOON)
  9. OLANZAPINE [Concomitant]
     Active Substance: OLANZAPINE
     Dosage: UNK, (1 AT BEDTIME)
  10. RIVOTRIL [Concomitant]
     Active Substance: CLONAZEPAM
     Dosage: 1 MILLIGRAM, Q8H
  11. RIVOTRIL [Concomitant]
     Active Substance: CLONAZEPAM
     Dosage: UNK, (3-4)

REACTIONS (5)
  - Feeling abnormal [Unknown]
  - Suicide attempt [Unknown]
  - Ill-defined disorder [Unknown]
  - Intentional self-injury [Unknown]
  - Drug ineffective [Unknown]
